FAERS Safety Report 8619462-9 (Version None)
Quarter: 2012Q3

REPORT INFORMATION
  Report Type: 
  Country: None (occurrence: None)
  Receive Date: 20120824
  Receipt Date: 20120816
  Transmission Date: 20120928
  Serious: Yes (Hospitalization)
  Sender: FDA-Public Use
  Company Number: GB-JNJFOC-20120810028

PATIENT
  Age: 68 Year
  Sex: Male
  Weight: 57.6 kg

DRUGS (8)
  1. CETIRIZINE [Concomitant]
     Dates: start: 20110718
  2. BETAMETHASONE [Concomitant]
     Dates: start: 20100124
  3. CALCIUM CARBONATE [Concomitant]
     Dates: start: 20081215
  4. ARCOXIA [Concomitant]
     Dates: start: 20101006
  5. PANTOPRAZOLE [Concomitant]
  6. BISOPROLOL FUMARATE [Concomitant]
     Dates: start: 20110503
  7. REMICADE [Suspect]
     Indication: PSORIASIS
     Route: 042
     Dates: start: 20100202
  8. ESCITALOPRAM [Concomitant]
     Dates: start: 20080410

REACTIONS (2)
  - VOMITING [None]
  - NAUSEA [None]
